FAERS Safety Report 5257111-0 (Version None)
Quarter: 2007Q1

REPORT INFORMATION
  Report Type: 
  Country: None (occurrence: None)
  Receive Date: 20070307
  Receipt Date: 20070305
  Transmission Date: 20070707
  Serious: Yes (Hospitalization, Other)
  Sender: FDA-Public Use
  Company Number: NG-BRISTOL-MYERS SQUIBB COMPANY-13700752

PATIENT
  Age: 15 Year
  Sex: Female

DRUGS (3)
  1. CAPTOPRIL [Suspect]
     Indication: HYPERTENSION
  2. AMPICILLIN [Suspect]
     Indication: INFECTION
     Route: 042
  3. CLOXACILLIN SODIUM [Suspect]
     Indication: INFECTION
     Route: 042

REACTIONS (2)
  - FOCAL GLOMERULOSCLEROSIS [None]
  - RENAL FAILURE ACUTE [None]
